FAERS Safety Report 13058600 (Version 2)
Quarter: 2017Q1

REPORT INFORMATION
  Report Type: Report from Study
  Country: US (occurrence: US)
  Receive Date: 20161223
  Receipt Date: 20170328
  Transmission Date: 20170428
  Serious: Yes (Death, Hospitalization, Other)
  Sender: FDA-Public Use
  Company Number: US-JNJFOC-20160800168

PATIENT
  Age: 68 Year
  Sex: Male
  Weight: 53 kg

DRUGS (1)
  1. IMBRUVICA [Suspect]
     Active Substance: IBRUTINIB
     Indication: CHRONIC LYMPHOCYTIC LEUKAEMIA
     Route: 048
     Dates: start: 20150410

REACTIONS (12)
  - Disease progression [Fatal]
  - Tracheostomy malfunction [Recovered/Resolved]
  - Laryngeal cancer [Unknown]
  - General physical health deterioration [Unknown]
  - Productive cough [Unknown]
  - Off label use [Recovered/Resolved]
  - Dysphagia [Unknown]
  - Abdominal distension [Recovered/Resolved]
  - Pneumothorax [Recovered/Resolved]
  - Pneumonia [Unknown]
  - Product use issue [Recovered/Resolved]
  - Abdominal pain [Recovered/Resolved]

NARRATIVE: CASE EVENT DATE: 20150410
